FAERS Safety Report 5743644-7 (Version None)
Quarter: 2008Q2

REPORT INFORMATION
  Report Type: 
  Country: None (occurrence: None)
  Receive Date: 20080519
  Receipt Date: 20080519
  Transmission Date: 20081010
  Serious: Yes (Hospitalization)
  Sender: FDA-Public Use
  Company Number: None

PATIENT
  Sex: Female
  Weight: 57.4 kg

DRUGS (1)
  1. TAXOL [Suspect]
     Dosage: 280 MG

REACTIONS (1)
  - HYPERGLYCAEMIA [None]
